FAERS Safety Report 17909097 (Version 1)
Quarter: 2020Q2

REPORT INFORMATION
  Report Type: Report from Study
  Country: None (occurrence: US)
  Receive Date: 20200618
  Receipt Date: 20200618
  Transmission Date: 20200714
  Serious: Yes (Hospitalization, Other)
  Sender: FDA-Public Use
  Company Number: US-ABBVIE-19K-163-3011054-00

PATIENT
  Sex: Female
  Weight: 65.83 kg

DRUGS (4)
  1. HUMIRA [Suspect]
     Active Substance: ADALIMUMAB
     Indication: PSORIASIS
  2. FOLIC ACID. [Concomitant]
     Active Substance: FOLIC ACID
     Indication: PRODUCT USED FOR UNKNOWN INDICATION
  3. HUMIRA [Suspect]
     Active Substance: ADALIMUMAB
     Indication: PSORIATIC ARTHROPATHY
     Route: 058
     Dates: start: 20191113
  4. GABAPENTIN. [Concomitant]
     Active Substance: GABAPENTIN
     Indication: PRODUCT USED FOR UNKNOWN INDICATION

REACTIONS (22)
  - Cataract [Unknown]
  - Musculoskeletal pain [Unknown]
  - Musculoskeletal disorder [Unknown]
  - Visual impairment [Unknown]
  - Nightmare [Unknown]
  - Psoriasis [Recovering/Resolving]
  - Mobility decreased [Not Recovered/Not Resolved]
  - Fall [Recovered/Resolved]
  - Tooth fracture [Not Recovered/Not Resolved]
  - Allergy to plants [Recovered/Resolved]
  - Blood glucose abnormal [Recovering/Resolving]
  - Fat tissue decreased [Not Recovered/Not Resolved]
  - Hypoaesthesia [Unknown]
  - Back pain [Not Recovered/Not Resolved]
  - Nasopharyngitis [Not Recovered/Not Resolved]
  - Therapeutic product effect incomplete [Not Recovered/Not Resolved]
  - Back disorder [Not Recovered/Not Resolved]
  - Erythema [Not Recovered/Not Resolved]
  - Gait disturbance [Unknown]
  - Skin erosion [Not Recovered/Not Resolved]
  - Depression [Recovering/Resolving]
  - Frustration tolerance decreased [Unknown]
